FAERS Safety Report 9752864 (Version 3)
Quarter: 2014Q2

REPORT INFORMATION
  Report Type: Spontaneous
  Country: DE (occurrence: DE)
  Receive Date: 20131213
  Receipt Date: 20140630
  Transmission Date: 20141212
  Serious: Yes (Other)
  Sender: FDA-Public Use
  Company Number: DE-PFIZER INC-2013334010

PATIENT
  Age: 68 Year
  Sex: Male
  Weight: 142.5 kg

DRUGS (15)
  1. ARGATRA [Suspect]
     Indication: ANTICOAGULATION DRUG LEVEL
     Dosage: 35 ML BOLUS; 16.8 ML/H CONT INFUSION
     Route: 042
     Dates: start: 20131023
  2. ARGATRA [Suspect]
     Dosage: 30 ML BOLUS; 15 ML/H CONT INFUSION (1 IN 1 HR)
     Route: 042
     Dates: start: 20131115
  3. ARGATRA [Suspect]
     Dosage: 30 ML BOLUS; 14 ML/H CONT INFUSION (1 IN 1 HR)
     Route: 042
     Dates: start: 20131120
  4. PREDNISOLONE [Concomitant]
     Indication: PRODUCT USED FOR UNKNOWN INDICATION
     Dosage: 5 MG, 1X/DAY
     Route: 048
  5. FUROSEMIDE [Concomitant]
     Indication: PRODUCT USED FOR UNKNOWN INDICATION
     Dosage: 500 (2 IN 1 D)
     Route: 048
  6. OMEPRAZOLE [Concomitant]
     Indication: PRODUCT USED FOR UNKNOWN INDICATION
     Dosage: 10 MG (20 MG,1 IN 2 D)
     Route: 048
  7. VIANI FORTE [Concomitant]
     Indication: PRODUCT USED FOR UNKNOWN INDICATION
     Dosage: 25UG/250UG120H (2 IN 1 D)
     Route: 048
  8. APSOMOL [Concomitant]
     Indication: PRODUCT USED FOR UNKNOWN INDICATION
     Dosage: 200, NO UNITS PROVIDED (DAILY, IF REQUIRED)
     Route: 048
  9. TEVACIDOL [Concomitant]
     Indication: PRODUCT USED FOR UNKNOWN INDICATION
     Dosage: 1 UG, 1X/DAY
     Route: 048
  10. IMOGAS FORTE [Concomitant]
     Indication: PRODUCT USED FOR UNKNOWN INDICATION
     Dosage: 3 IN 1 D
     Route: 048
  11. DREISAVIT N [Concomitant]
     Indication: PRODUCT USED FOR UNKNOWN INDICATION
     Dosage: 1 IN 1 D
     Route: 048
  12. VIGANTOLETTEN [Concomitant]
     Indication: PRODUCT USED FOR UNKNOWN INDICATION
     Dosage: 500 IU (500 IU,1 IN 1 D)
  13. FERRIC SODIUM GLUCONATE COMPLEX [Concomitant]
     Indication: DIALYSIS
     Dosage: 17.8571 MG (62.5 MG,MON, FRI)
     Route: 042
  14. ZEMPLAR [Concomitant]
     Indication: DIALYSIS
     Dosage: 0.7143 MCG (5 MCG,WEDNESDAY)
     Route: 042
  15. NEORECORMON [Concomitant]
     Indication: DIALYSIS
     Dosage: 857.1429 IU (6000 IU,WEDNESDAY)
     Route: 058

REACTIONS (5)
  - Renal failure chronic [Unknown]
  - Fatigue [Recovered/Resolved]
  - Restlessness [Recovered/Resolved]
  - Asthenia [Recovered/Resolved]
  - Vasculitis [Unknown]
